FAERS Safety Report 9005630 (Version 1)
Quarter: 2013Q1

REPORT INFORMATION
  Report Type: Spontaneous
  Country: US (occurrence: US)
  Receive Date: 20130109
  Receipt Date: 20130109
  Transmission Date: 20140127
  Serious: Yes (Death)
  Sender: FDA-Public Use
  Company Number: US-PFIZER INC-2013004408

PATIENT
  Age: 55 Year
  Sex: Male

DRUGS (6)
  1. ALPRAZOLAM [Suspect]
     Route: 048
  2. HYDROXYZINE PAMOATE [Suspect]
  3. GABAPENTIN [Suspect]
     Route: 048
  4. DROPERIDOL\FENTANYL [Suspect]
  5. CYCLOBENZAPRINE [Suspect]
  6. CANNABIS SATIVA SUBSP. INDICA TOP [Suspect]

REACTIONS (4)
  - Death [Fatal]
  - Respiratory arrest [Fatal]
  - Cardiac arrest [Fatal]
  - Toxicity to various agents [None]
